FAERS Safety Report 5134065-9 (Version None)
Quarter: 2006Q4

REPORT INFORMATION
  Report Type: 
  Country: None (occurrence: None)
  Receive Date: 20061019
  Receipt Date: 20061010
  Transmission Date: 20070319
  Serious: Yes (Other)
  Sender: FDA-Public Use
  Company Number: GXKR2006GB06264

PATIENT
  Age: 31 Year
  Sex: Female

DRUGS (4)
  1. SERTRALINE (NGX) (SERTRALINE) 25 MG [Suspect]
     Indication: PANIC DISORDER
     Dosage: SEE IMAGE
  2. ALPRAZOLAM [Suspect]
     Indication: PANIC DISORDER
     Dosage: SEE IMAGE
  3. PAROXETINE HCL [Suspect]
     Indication: PANIC DISORDER
     Dosage: 20 MG, DAY
  4. ALCOHOL (ETHANOL) [Suspect]
     Dosage: ORAL
     Route: 048

REACTIONS (11)
  - AGGRESSION [None]
  - AGITATION [None]
  - ALCOHOL POISONING [None]
  - DEPRESSION [None]
  - GUN SHOT WOUND [None]
  - HOMICIDE [None]
  - INTENTIONAL OVERDOSE [None]
  - PSYCHOTIC DISORDER [None]
  - RESTLESSNESS [None]
  - SUICIDAL IDEATION [None]
  - TENSION [None]
